FAERS Safety Report 17065533 (Version 1)
Quarter: 2019Q4

REPORT INFORMATION
  Report Type: Spontaneous
  Country: US (occurrence: US)
  Receive Date: 20191122
  Receipt Date: 20191122
  Transmission Date: 20200122
  Serious: Yes (Life-Threatening)
  Sender: FDA-Public Use
  Company Number: US-TEVA-2019-US-1142028

PATIENT
  Sex: Female

DRUGS (2)
  1. AMIODARONE HYDROCHLORIDE TABLETS TEVA [Suspect]
     Active Substance: AMIODARONE HYDROCHLORIDE
     Indication: ATRIAL FIBRILLATION
     Route: 048
  2. AMIODARONE HYDROCHLORIDE TABLETS WYETH [Suspect]
     Active Substance: AMIODARONE HYDROCHLORIDE
     Indication: ATRIAL FIBRILLATION
     Route: 048

REACTIONS (15)
  - Corneal deposits [Unknown]
  - Visual acuity reduced [Unknown]
  - Anxiety [Unknown]
  - Astigmatism [Unknown]
  - Eye pain [Unknown]
  - Eye irritation [Unknown]
  - Blindness [Unknown]
  - Cataract [Unknown]
  - Presbyopia [Unknown]
  - Corneal disorder [Unknown]
  - Off label use [Unknown]
  - Eye injury [Unknown]
  - Coordination abnormal [Unknown]
  - Visual field defect [Unknown]
  - Vitreous floaters [Unknown]

NARRATIVE: CASE EVENT DATE: 201604
